FAERS Safety Report 7889725-3 (Version None)
Quarter: 2011Q4

REPORT INFORMATION
  Report Type: 
  Country: None (occurrence: None)
  Receive Date: 20111103
  Receipt Date: 20111028
  Transmission Date: 20120403
  Serious: Yes (Hospitalization)
  Sender: FDA-Public Use
  Company Number: US-ABBOTT-11P-163-0869924-00

PATIENT
  Sex: Female
  Weight: 114.41 kg

DRUGS (2)
  1. MULTI-VITAMINS [Concomitant]
     Indication: PREGNANCY
     Dates: start: 20090101
  2. HUMIRA [Suspect]
     Indication: PSORIATIC ARTHROPATHY
     Dates: start: 20090101, end: 20100901

REACTIONS (8)
  - SWELLING [None]
  - CAESAREAN SECTION [None]
  - HEADACHE [None]
  - PSORIASIS [None]
  - TWIN PREGNANCY [None]
  - VISION BLURRED [None]
  - MATERNAL EXPOSURE DURING PREGNANCY [None]
  - PRE-ECLAMPSIA [None]
